FAERS Safety Report 18199438 (Version 4)
Quarter: 2020Q3

REPORT INFORMATION
  Report Type: Report from Study
  Country: DE (occurrence: DE)
  Receive Date: 20200826
  Receipt Date: 20200912
  Transmission Date: 20201103
  Serious: No
  Sender: FDA-Public Use
  Company Number: NVSC2020DE232407

PATIENT
  Age: 55 Year
  Sex: Male
  Weight: 68 kg

DRUGS (4)
  1. DABRAFENIB [Suspect]
     Active Substance: DABRAFENIB
     Indication: MALIGNANT MELANOMA STAGE III
     Dosage: 300 MG
     Route: 065
     Dates: start: 20200812
  2. TRAMETINIB [Suspect]
     Active Substance: TRAMETINIB
     Indication: MALIGNANT MELANOMA STAGE III
     Dosage: 2 MG
     Route: 065
     Dates: start: 20200812
  3. DABRAFENIB [Suspect]
     Active Substance: DABRAFENIB
     Indication: BRAF V600E MUTATION POSITIVE
     Dosage: 300 MG
     Route: 065
     Dates: start: 20200716, end: 20200717
  4. TRAMETINIB [Suspect]
     Active Substance: TRAMETINIB
     Indication: BRAF V600E MUTATION POSITIVE
     Dosage: 2 MG
     Route: 065
     Dates: start: 20200716, end: 20200717

REACTIONS (2)
  - Nausea [Not Recovered/Not Resolved]
  - Depression [Not Recovered/Not Resolved]

NARRATIVE: CASE EVENT DATE: 20200717
